FAERS Safety Report 23723467 (Version 3)
Quarter: 2025Q1

REPORT INFORMATION
  Report Type: Spontaneous
  Country: US (occurrence: US)
  Receive Date: 20240409
  Receipt Date: 20250301
  Transmission Date: 20250409
  Serious: No
  Sender: SANOFI AVENTIS
  Company Number: US-SA-SAC20240403001439

PATIENT
  Age: 30 Year
  Sex: Male

DRUGS (2)
  1. DUPIXENT [Suspect]
     Active Substance: DUPILUMAB
     Indication: Dermatitis atopic
     Route: 058
     Dates: start: 202309, end: 202309
  2. DUPIXENT [Suspect]
     Active Substance: DUPILUMAB
     Indication: Eczema
     Dosage: 300 MG Q3W
     Route: 058
     Dates: start: 202402

REACTIONS (4)
  - Eczema [Recovered/Resolved]
  - Dry skin [Recovered/Resolved]
  - Rash [Recovered/Resolved]
  - Inappropriate schedule of product administration [Recovered/Resolved]
